FAERS Safety Report 9229603 (Version 1)
Quarter: 2013Q2

REPORT INFORMATION
  Report Type: Spontaneous
  Country: FR (occurrence: FR)
  Receive Date: 20130414
  Receipt Date: 20130414
  Transmission Date: 20140414
  Serious: Yes (Death, Hospitalization)
  Sender: FDA-Public Use
  Company Number: FR-009507513-1304FRA002477

PATIENT
  Age: 63 Year
  Sex: Male

DRUGS (2)
  1. TIENAM 500MG/500MG, POUDRE POUR PERFUSION [Suspect]
     Indication: URINARY TRACT INFECTION
     Dosage: UNK
     Route: 042
     Dates: start: 20121019, end: 20121105
  2. COLIMYCINE (COLISTIN SULFATE) [Concomitant]
     Indication: URINARY TRACT INFECTION
     Dosage: UNK
     Route: 042
     Dates: start: 20121018, end: 20121025

REACTIONS (2)
  - Clostridium difficile colitis [Fatal]
  - Diarrhoea [Fatal]
